FAERS Safety Report 4711592-7 (Version None)
Quarter: 2005Q3

REPORT INFORMATION
  Report Type: 
  Country: None (occurrence: None)
  Receive Date: 20050712
  Receipt Date: 20050630
  Transmission Date: 20060218
  Serious: Yes (Hospitalization)
  Sender: FDA-Public Use
  Company Number: US-JNJFOC-20050700125

PATIENT
  Age: 50 Year
  Sex: Male
  Weight: 90.72 kg

DRUGS (7)
  1. IMODIUM A-D [Suspect]
  2. IMODIUM A-D [Suspect]
  3. PREVACID [Concomitant]
  4. REGLAN [Concomitant]
  5. BENADRYL [Concomitant]
     Route: 049
  6. VASOTEC [Concomitant]
  7. ATENOLOL [Concomitant]

REACTIONS (3)
  - CONSTIPATION [None]
  - MYOCARDIAL INFARCTION [None]
  - OVERDOSE [None]
